FAERS Safety Report 6487969-9 (Version None)
Quarter: 2009Q4

REPORT INFORMATION
  Report Type: 
  Country: None (occurrence: None)
  Receive Date: 20091209
  Receipt Date: 20091209
  Transmission Date: 20100525
  Serious: Yes (Hospitalization)
  Sender: FDA-Public Use
  Company Number: None

PATIENT
  Age: 60 Year
  Sex: Female
  Weight: 80.29 kg

DRUGS (4)
  1. ICODEXTRIN [Suspect]
     Indication: PERITONEAL DIALYSIS
     Dosage: 2000 ML UNKNOWN OTHER
     Route: 050
     Dates: start: 20091102, end: 20091113
  2. ICODEXTRIN [Suspect]
     Indication: RENAL FAILURE
     Dosage: 2000 ML UNKNOWN OTHER
     Route: 050
     Dates: start: 20091102, end: 20091113
  3. CINACALCET HYDROCHLORIDE [Suspect]
     Indication: HYPERCALCAEMIA
     Dosage: 30 MG BID PO
     Route: 048
     Dates: start: 20090616, end: 20091121
  4. CINACALCET HYDROCHLORIDE [Suspect]
     Indication: RENAL FAILURE
     Dosage: 30 MG BID PO
     Route: 048
     Dates: start: 20090616, end: 20091121

REACTIONS (8)
  - ASTHENIA [None]
  - BLOOD ALBUMIN DECREASED [None]
  - BLOOD CALCIUM DECREASED [None]
  - DIZZINESS [None]
  - DRUG HYPERSENSITIVITY [None]
  - GAIT DISTURBANCE [None]
  - HYPOTENSION [None]
  - PERITONEAL DIALYSIS [None]
